FAERS Safety Report 21526235 (Version 1)
Quarter: 2022Q4

REPORT INFORMATION
  Report Type: Spontaneous
  Country: US (occurrence: US)
  Receive Date: 20221031
  Receipt Date: 20221031
  Transmission Date: 20230113
  Serious: Yes (Other)
  Sender: FDA-Public Use
  Company Number: US-drreddys-SPO/USA/22/0156351

PATIENT
  Age: 15 Year
  Sex: Female

DRUGS (2)
  1. ACCUTANE [Suspect]
     Active Substance: ISOTRETINOIN
     Indication: Acne
     Dosage: RMA ISSUE DATE: 6 JULY 2022 04:25:50 PM, 8 AUGUST 2022 06:26:11 PM AND 13 SEPTEMBER 2022 12:21:21 PM
  2. ACCUTANE [Suspect]
     Active Substance: ISOTRETINOIN
     Dosage: RMA ISSUE DATE: 1 JUNE 2022 06:48:28 PM

REACTIONS (1)
  - Mood altered [Unknown]
